FAERS Safety Report 15797326 (Version 1)
Quarter: 2019Q1

REPORT INFORMATION
  Report Type: Spontaneous
  Country: US (occurrence: US)
  Receive Date: 20190107
  Receipt Date: 20190107
  Transmission Date: 20190417
  Serious: Yes (Other)
  Sender: FDA-Public Use
  Company Number: None

PATIENT
  Age: 49 Year
  Sex: Male
  Weight: 86 kg

DRUGS (1)
  1. NULOJIX [Suspect]
     Active Substance: BELATACEPT
     Indication: IMMUNOSUPPRESSION
     Dosage: 5 MG/MK MONTHLY INTRAVENOUS DRIP
     Route: 041
     Dates: start: 20181019, end: 20181206

REACTIONS (3)
  - Proteinuria [None]
  - Urine protein/creatinine ratio decreased [None]
  - Infusion related reaction [None]

NARRATIVE: CASE EVENT DATE: 20181023
